FAERS Safety Report 7665008-1 (Version None)
Quarter: 2011Q3

REPORT INFORMATION
  Report Type: 
  Country: None (occurrence: None)
  Receive Date: 20110806
  Receipt Date: 20110214
  Transmission Date: 20111222
  Serious: No
  Sender: FDA-Public Use
  Company Number: US-ABBOTT-11P-163-0704998-00

PATIENT
  Sex: Female
  Weight: 72.64 kg

DRUGS (3)
  1. UNKNOWN CARDIAC MEDICATIONS [Concomitant]
     Indication: PRODUCT USED FOR UNKNOWN INDICATION
  2. NIASPAN [Suspect]
     Indication: BLOOD TRIGLYCERIDES INCREASED
     Dates: start: 20110124, end: 20110131
  3. NIASPAN [Suspect]
     Dates: start: 20110207

REACTIONS (2)
  - DYSPNOEA [None]
  - FLUSHING [None]
